FAERS Safety Report 6817992-3 (Version None)
Quarter: 2010Q3

REPORT INFORMATION
  Report Type: 
  Country: None (occurrence: None)
  Receive Date: 20100706
  Receipt Date: 20100625
  Transmission Date: 20110219
  Serious: Yes (Disabling)
  Sender: FDA-Public Use
  Company Number: GXKR2010GB06367

PATIENT

DRUGS (2)
  1. LANSOPRAZOLE [Suspect]
     Indication: NAUSEA
     Dosage: UNK
     Route: 065
     Dates: start: 20100320, end: 20100417
  2. OMEPRAZOLE [Suspect]
     Indication: NAUSEA
     Dosage: UNK
     Route: 048
     Dates: start: 20100420, end: 20100510

REACTIONS (3)
  - EMOTIONAL DISORDER [None]
  - PHOTOSENSITIVITY REACTION [None]
  - SKIN REACTION [None]
